FAERS Safety Report 8572026-8 (Version None)
Quarter: 2012Q2

REPORT INFORMATION
  Report Type: 
  Country: None (occurrence: None)
  Receive Date: 20120423
  Receipt Date: 20100825
  Transmission Date: 20120825
  Serious: Yes (Other)
  Sender: FDA-Public Use
  Company Number: PHHY2010US56408

PATIENT
  Sex: Male
  Weight: 87.5 kg

DRUGS (1)
  1. EXJADE [Suspect]
     Dosage: 2500 MG DAILY, ORAL
     Route: 048
     Dates: start: 20060728

REACTIONS (1)
  - RENAL IMPAIRMENT [None]
